FAERS Safety Report 9514000 (Version 1)
Quarter: 2013Q3

REPORT INFORMATION
  Report Type: Spontaneous
  Country: US (occurrence: US)
  Receive Date: 20130910
  Receipt Date: 20130910
  Transmission Date: 20140515
  Serious: No
  Sender: FDA-Public Use
  Company Number: US-UPSHER-SMITH LABORATORIES, INC.-12002355

PATIENT
  Age: 65 Year
  Sex: Male

DRUGS (4)
  1. OXYBUTYNIN CHLORIDE [Suspect]
     Dosage: UNK, QD
     Route: 048
     Dates: start: 1996
  2. TRIAMTERENE [Concomitant]
     Dosage: UNK
  3. FESOTERODINE [Concomitant]
     Indication: MICTURITION URGENCY
     Dosage: UNK
  4. UNSPECIFIED DIABETES MEDICATIONS [Concomitant]
     Dosage: UNK

REACTIONS (1)
  - Drug ineffective [Not Recovered/Not Resolved]
